FAERS Safety Report 11458962 (Version 6)
Quarter: 2016Q1

REPORT INFORMATION
  Report Type: Report from Study
  Country: JP (occurrence: JP)
  Receive Date: 20150904
  Receipt Date: 20160216
  Transmission Date: 20160525
  Serious: Yes (Death, Life-Threatening, Other)
  Sender: FDA-Public Use
  Company Number: JP-009507513-1509JPN001186

PATIENT
  Age: 67 Year
  Sex: Male
  Weight: 68 kg

DRUGS (9)
  1. CUBICIN [Suspect]
     Active Substance: DAPTOMYCIN
     Dosage: 5.8 MG/KG, QOD
     Route: 041
     Dates: start: 20130819, end: 20130821
  2. NEO-MINOPHAGEN C [Concomitant]
     Active Substance: AMMONIUM GLYCYRRHIZATE
     Dosage: 20 ML, QD
     Route: 051
     Dates: start: 20130729, end: 20130825
  3. SOLDACTONE [Concomitant]
     Active Substance: CANRENOATE POTASSIUM
     Indication: HEPATIC CIRRHOSIS
     Dosage: 200 MG, QD
     Route: 051
     Dates: start: 20130804, end: 20130818
  4. MEROPENEM. [Concomitant]
     Active Substance: MEROPENEM
     Indication: INFECTIOUS PLEURAL EFFUSION
     Dosage: 0.5 MG, TID
     Route: 051
     Dates: start: 20130803, end: 20130807
  5. KENKETU NONTHRON [Concomitant]
     Indication: PORTAL VEIN THROMBOSIS
     Dosage: 1500 (UNDER 1000 UNIT), QD
     Route: 051
     Dates: start: 20130729, end: 20130825
  6. TAKEPRON [Concomitant]
     Active Substance: LANSOPRAZOLE
     Indication: PROPHYLAXIS
     Dosage: 30 MG, BID
     Route: 051
     Dates: start: 20130729, end: 20130802
  7. LINEZOLID. [Concomitant]
     Active Substance: LINEZOLID
     Indication: STAPHYLOCOCCAL SEPSIS
     Dosage: 1200 MG(DIVIDED DOSE FREQUENCY UNKNOWN)
     Route: 041
     Dates: start: 20130720, end: 20130728
  8. CUBICIN [Suspect]
     Active Substance: DAPTOMYCIN
     Indication: STAPHYLOCOCCAL SEPSIS
     Dosage: 5.8 MG/KG, QD
     Route: 041
     Dates: start: 20130729, end: 20130818
  9. ORGARAN [Concomitant]
     Active Substance: DANAPAROID SODIUM
     Dosage: 1250 (UNDER 1000 UNIT), BID
     Route: 051
     Dates: start: 20130729, end: 20130822

REACTIONS (6)
  - Drug ineffective [Unknown]
  - Cirrhosis alcoholic [Fatal]
  - White blood cell count increased [Unknown]
  - Multiple organ dysfunction syndrome [Fatal]
  - Renal impairment [Fatal]
  - Disseminated intravascular coagulation [Unknown]

NARRATIVE: CASE EVENT DATE: 20130806
